FAERS Safety Report 4284305-3 (Version None)
Quarter: 2004Q1

REPORT INFORMATION
  Report Type: 
  Country: None (occurrence: None)
  Receive Date: 20040203
  Receipt Date: 20030411
  Transmission Date: 20041129
  Serious: Yes (Disabling)
  Sender: FDA-Public Use
  Company Number: WAES 0304USA01368

PATIENT
  Age: 47 Year
  Sex: Female
  Weight: 105 kg

DRUGS (18)
  1. DARVOCET-N 100 [Concomitant]
  2. ALBUTEROL [Concomitant]
  3. PROVENTIL [Concomitant]
  4. ZITHROMAX [Concomitant]
  5. ATACAND [Concomitant]
     Dates: start: 20000430
  6. BIAXIN [Concomitant]
  7. FLOVENT [Concomitant]
  8. ADVAIR DISKUS 100/50 [Concomitant]
  9. FORADIL [Concomitant]
  10. FUROSEMIDE [Concomitant]
  11. GUAIFENESIN [Concomitant]
  12. MECLIZINE [Concomitant]
  13. METHYLPREDNISOLONE [Concomitant]
  14. OXYCONTIN [Concomitant]
     Indication: PAIN
  15. VIOXX [Suspect]
     Indication: OSTEOARTHRITIS
     Route: 048
     Dates: start: 20000120, end: 20010827
  16. VIOXX [Suspect]
     Route: 048
  17. VIOXX [Suspect]
     Indication: INFLAMMATION
     Route: 048
     Dates: start: 20000120, end: 20010827
  18. VIOXX [Suspect]
     Route: 048

REACTIONS (15)
  - BLOOD PRESSURE INCREASED [None]
  - CARDIAC MURMUR [None]
  - CHRONIC OBSTRUCTIVE AIRWAYS DISEASE [None]
  - DEPRESSION [None]
  - DIABETES MELLITUS [None]
  - DYSPNOEA EXACERBATED [None]
  - EMPHYSEMA [None]
  - FATIGUE [None]
  - HYPERTENSION [None]
  - INJURY [None]
  - LUNG INFECTION [None]
  - MUSCLE CRAMP [None]
  - OEDEMA PERIPHERAL [None]
  - OSTEOARTHRITIS [None]
  - WHEEZING [None]
